FAERS Safety Report 7451187-8 (Version None)
Quarter: 2011Q2

REPORT INFORMATION
  Report Type: 
  Country: None (occurrence: None)
  Receive Date: 20110422
  Receipt Date: 20110415
  Transmission Date: 20111010
  Serious: Yes (Hospitalization, Other)
  Sender: FDA-Public Use
  Company Number: 2010SP004039

PATIENT
  Age: 21 Year
  Sex: Female

DRUGS (6)
  1. NAPROXEN [Concomitant]
  2. PAXIL [Concomitant]
  3. SYNTHROID [Concomitant]
  4. BUSPAR [Concomitant]
  5. NUVARING [Suspect]
     Indication: CONTRACEPTION
     Dates: start: 20040501, end: 20040627
  6. CLARITIN [Concomitant]

REACTIONS (10)
  - SINUS TACHYCARDIA [None]
  - MENOMETRORRHAGIA [None]
  - BACK PAIN [None]
  - PREGNANCY [None]
  - GALLBLADDER DISORDER [None]
  - DRUG EXPOSURE DURING PREGNANCY [None]
  - ROAD TRAFFIC ACCIDENT [None]
  - DYSFUNCTIONAL UTERINE BLEEDING [None]
  - PULMONARY EMBOLISM [None]
  - PNEUMONIA [None]
